FAERS Safety Report 20112530 (Version 1)
Quarter: 2021Q4

REPORT INFORMATION
  Report Type: Spontaneous
  Country: FR (occurrence: FR)
  Receive Date: 20211125
  Receipt Date: 20211125
  Transmission Date: 20220303
  Serious: Yes (Life-Threatening, Hospitalization)
  Sender: FDA-Public Use
  Company Number: None

PATIENT
  Age: 9 Year
  Sex: Male
  Weight: 34 kg

DRUGS (1)
  1. RIVOTRIL [Suspect]
     Active Substance: CLONAZEPAM
     Indication: Muscle spasticity
     Route: 048
     Dates: start: 201909, end: 20211025

REACTIONS (4)
  - Sedation [Recovered/Resolved]
  - Accidental overdose [Unknown]
  - Product primary packaging issue [Unknown]
  - Product administration error [Unknown]

NARRATIVE: CASE EVENT DATE: 20211025
